FAERS Safety Report 8028468-2 (Version None)
Quarter: 2012Q1

REPORT INFORMATION
  Report Type: 
  Country: None (occurrence: None)
  Receive Date: 20120104
  Receipt Date: 20111223
  Transmission Date: 20120608
  Serious: Yes (Congenital Anomaly, Other)
  Sender: FDA-Public Use
  Company Number: 2011SP059783

PATIENT
  Sex: Male

DRUGS (1)
  1. IMPLANON [Suspect]
     Indication: MATERNAL DRUGS AFFECTING FOETUS
     Dosage: TRPL
     Route: 064

REACTIONS (4)
  - PREGNANCY WITH IMPLANT CONTRACEPTIVE [None]
  - MATERNAL DRUGS AFFECTING FOETUS [None]
  - DILATATION VENTRICULAR [None]
  - MACROSOMIA [None]
